FAERS Safety Report 6577270-7 (Version None)
Quarter: 2010Q1

REPORT INFORMATION
  Report Type: 
  Country: None (occurrence: None)
  Receive Date: 20100210
  Receipt Date: 20091229
  Transmission Date: 20100710
  Serious: Yes (Death, Hospitalization, Other)
  Sender: FDA-Public Use
  Company Number: US-BAXTER-2008BH011002

PATIENT
  Age: 58 Year
  Sex: Male
  Weight: 63 kg

DRUGS (75)
  1. HEPARIN SODIUM INJECTION [Suspect]
     Indication: THROMBOSIS PROPHYLAXIS
     Route: 042
     Dates: start: 20070901, end: 20080301
  2. HEPARIN SODIUM INJECTION [Suspect]
     Indication: INTRAVENOUS CATHETER MANAGEMENT
     Route: 042
     Dates: start: 20070901, end: 20080301
  3. HEPARIN SODIUM INJECTION [Suspect]
     Route: 042
     Dates: start: 20070901, end: 20080301
  4. HEPARIN SODIUM INJECTION [Suspect]
     Route: 058
     Dates: start: 20080405, end: 20080412
  5. HEPARIN SODIUM INJECTION [Suspect]
     Route: 058
     Dates: start: 20080405, end: 20080412
  6. HEPARIN SODIUM INJECTION [Suspect]
     Route: 058
     Dates: start: 20080405, end: 20080412
  7. HEPARIN SODIUM INJECTION [Suspect]
     Route: 042
     Dates: start: 20070213, end: 20070213
  8. HEPARIN SODIUM INJECTION [Suspect]
     Route: 042
     Dates: start: 20070213, end: 20070213
  9. HEPARIN SODIUM INJECTION [Suspect]
     Route: 042
     Dates: start: 20070213, end: 20070213
  10. HEPARIN SODIUM INJECTION [Suspect]
     Route: 065
     Dates: start: 20080424, end: 20080428
  11. HEPARIN SODIUM INJECTION [Suspect]
     Route: 065
     Dates: start: 20080424, end: 20080428
  12. HEPARIN SODIUM INJECTION [Suspect]
     Route: 065
     Dates: start: 20080424, end: 20080428
  13. HEPARIN SODIUM INJECTION [Suspect]
     Route: 033
     Dates: start: 20070303, end: 20070303
  14. HEPARIN SODIUM INJECTION [Suspect]
     Route: 033
     Dates: start: 20070303, end: 20070303
  15. HEPARIN SODIUM INJECTION [Suspect]
     Route: 033
     Dates: start: 20070303, end: 20070303
  16. HEPARIN SODIUM INJECTION [Suspect]
     Route: 033
     Dates: start: 20070305, end: 20070305
  17. HEPARIN SODIUM INJECTION [Suspect]
     Route: 033
     Dates: start: 20070305, end: 20070305
  18. HEPARIN SODIUM INJECTION [Suspect]
     Route: 033
     Dates: start: 20070305, end: 20070305
  19. HEPARIN SODIUM INJECTION [Suspect]
     Route: 065
     Dates: start: 20080122
  20. HEPARIN SODIUM INJECTION [Suspect]
     Route: 065
     Dates: start: 20080122
  21. HEPARIN SODIUM INJECTION [Suspect]
     Route: 065
     Dates: start: 20080122
  22. HEPARIN SODIUM INJECTION [Suspect]
     Route: 058
     Dates: start: 20080404, end: 20080412
  23. HEPARIN SODIUM INJECTION [Suspect]
     Route: 058
     Dates: start: 20080404, end: 20080412
  24. HEPARIN SODIUM INJECTION [Suspect]
     Route: 058
     Dates: start: 20080404, end: 20080412
  25. HEPARIN SODIUM INJECTION [Suspect]
     Route: 010
     Dates: start: 20080404, end: 20080404
  26. HEPARIN SODIUM INJECTION [Suspect]
     Route: 010
     Dates: start: 20080404, end: 20080404
  27. HEPARIN SODIUM INJECTION [Suspect]
     Route: 010
     Dates: start: 20080404, end: 20080404
  28. HEPARIN SODIUM INJECTION [Suspect]
     Route: 010
     Dates: start: 20080408, end: 20080408
  29. HEPARIN SODIUM INJECTION [Suspect]
     Route: 010
     Dates: start: 20080408, end: 20080408
  30. HEPARIN SODIUM INJECTION [Suspect]
     Route: 010
     Dates: start: 20080408, end: 20080408
  31. HEPARIN SODIUM INJECTION [Suspect]
     Route: 010
     Dates: start: 20080410, end: 20080410
  32. HEPARIN SODIUM INJECTION [Suspect]
     Route: 010
     Dates: start: 20080410, end: 20080410
  33. HEPARIN SODIUM INJECTION [Suspect]
     Route: 010
     Dates: start: 20080410, end: 20080410
  34. HEPARIN SODIUM INJECTION [Suspect]
     Route: 058
     Dates: start: 20080424
  35. HEPARIN SODIUM INJECTION [Suspect]
     Route: 058
     Dates: start: 20080424
  36. HEPARIN SODIUM INJECTION [Suspect]
     Route: 058
     Dates: start: 20080424
  37. HEPARIN SODIUM INJECTION [Suspect]
     Route: 040
     Dates: start: 20080823, end: 20080826
  38. HEPARIN SODIUM INJECTION [Suspect]
     Route: 040
     Dates: start: 20080823, end: 20080826
  39. HEPARIN SODIUM INJECTION [Suspect]
     Route: 040
     Dates: start: 20080823, end: 20080826
  40. HEPARIN SODIUM INJECTION [Suspect]
     Route: 041
     Dates: start: 20080823, end: 20080826
  41. HEPARIN SODIUM INJECTION [Suspect]
     Route: 041
     Dates: start: 20080823, end: 20080826
  42. HEPARIN SODIUM INJECTION [Suspect]
     Route: 041
     Dates: start: 20080823, end: 20080826
  43. HEPARIN SODIUM INJECTION [Suspect]
     Route: 058
     Dates: start: 20080824, end: 20080825
  44. HEPARIN SODIUM INJECTION [Suspect]
     Route: 058
     Dates: start: 20080824, end: 20080825
  45. HEPARIN SODIUM INJECTION [Suspect]
     Route: 058
     Dates: start: 20080824, end: 20080825
  46. HEPARIN SODIUM INJECTION [Suspect]
     Route: 065
     Dates: end: 20080829
  47. HEPARIN SODIUM INJECTION [Suspect]
     Route: 065
     Dates: end: 20080829
  48. HEPARIN SODIUM INJECTION [Suspect]
     Route: 065
     Dates: end: 20080829
  49. ARANESP [Concomitant]
     Indication: DRUG USE FOR UNKNOWN INDICATION
     Route: 058
  50. ZINC [Concomitant]
     Indication: DRUG USE FOR UNKNOWN INDICATION
     Route: 048
  51. AMLODIPINE [Concomitant]
     Indication: DRUG USE FOR UNKNOWN INDICATION
     Route: 048
  52. MONOPRIL [Concomitant]
     Indication: DRUG USE FOR UNKNOWN INDICATION
     Route: 048
  53. TOPROL-XL [Concomitant]
     Indication: DRUG USE FOR UNKNOWN INDICATION
     Route: 048
  54. HYDROCHLOROTHIAZIDE [Concomitant]
     Indication: DRUG USE FOR UNKNOWN INDICATION
     Route: 048
  55. ASPIRIN [Concomitant]
     Indication: DRUG USE FOR UNKNOWN INDICATION
     Route: 048
  56. TORSEMIDE [Concomitant]
     Indication: DRUG USE FOR UNKNOWN INDICATION
     Route: 048
  57. MIRALAX [Concomitant]
     Indication: DRUG USE FOR UNKNOWN INDICATION
     Route: 048
  58. GENTAMYCIN-MP [Concomitant]
     Indication: DRUG USE FOR UNKNOWN INDICATION
     Route: 061
  59. RENAGEL [Concomitant]
     Indication: DRUG USE FOR UNKNOWN INDICATION
     Route: 048
  60. FOSINOPRIL SODIUM [Concomitant]
     Indication: DRUG USE FOR UNKNOWN INDICATION
     Route: 048
  61. VENOFER [Concomitant]
     Indication: DRUG USE FOR UNKNOWN INDICATION
     Route: 042
  62. CARNITOR [Concomitant]
     Indication: DRUG USE FOR UNKNOWN INDICATION
     Route: 042
  63. ZANTAC [Concomitant]
     Indication: DRUG USE FOR UNKNOWN INDICATION
     Route: 048
  64. ZANTAC [Concomitant]
     Route: 048
  65. DEMADEX [Concomitant]
     Indication: DRUG USE FOR UNKNOWN INDICATION
     Route: 048
  66. LISINOPRIL [Concomitant]
     Indication: DRUG USE FOR UNKNOWN INDICATION
     Route: 048
  67. AMARYL [Concomitant]
     Indication: DRUG USE FOR UNKNOWN INDICATION
     Route: 048
  68. ISORDIL [Concomitant]
     Indication: DRUG USE FOR UNKNOWN INDICATION
     Route: 048
  69. METOPROLOL TARTRATE [Concomitant]
     Indication: DRUG USE FOR UNKNOWN INDICATION
     Route: 048
  70. AMOXIL SODIUM [Concomitant]
     Indication: DRUG USE FOR UNKNOWN INDICATION
     Route: 048
  71. MONOPRIL [Concomitant]
     Route: 048
  72. LEXAPRO [Concomitant]
     Indication: DRUG USE FOR UNKNOWN INDICATION
     Route: 048
  73. SYNTHROID [Concomitant]
     Indication: DRUG USE FOR UNKNOWN INDICATION
     Route: 048
  74. FOLIC ACID [Concomitant]
     Indication: DRUG USE FOR UNKNOWN INDICATION
     Route: 048
  75. CLONIDINE [Concomitant]
     Indication: DRUG USE FOR UNKNOWN INDICATION
     Route: 048

REACTIONS (34)
  - ABDOMINAL ABSCESS [None]
  - ABDOMINAL PAIN [None]
  - ACUTE MYOCARDIAL INFARCTION [None]
  - ANAEMIA [None]
  - AORTIC STENOSIS [None]
  - AORTIC VALVE DISEASE [None]
  - ASCITES [None]
  - ASTHENIA [None]
  - BACK PAIN [None]
  - BRADYCARDIA [None]
  - CARDIAC ARREST [None]
  - CARDIAC FAILURE CONGESTIVE [None]
  - CHRONIC OBSTRUCTIVE PULMONARY DISEASE [None]
  - CORONARY ARTERY DISEASE [None]
  - DECREASED APPETITE [None]
  - DIABETES MELLITUS [None]
  - DYSPNOEA [None]
  - FALL [None]
  - GASTROINTESTINAL HAEMORRHAGE [None]
  - HYPERKALAEMIA [None]
  - HYPERTENSION [None]
  - HYPOTENSION [None]
  - LACTIC ACIDOSIS [None]
  - MITRAL VALVE DISEASE [None]
  - MUSCLE SPASMS [None]
  - PNEUMONIA [None]
  - PULMONARY OEDEMA [None]
  - PYREXIA [None]
  - RENAL FAILURE [None]
  - RENAL FAILURE CHRONIC [None]
  - RESPIRATORY FAILURE [None]
  - SEPSIS [None]
  - STAPHYLOCOCCAL BACTERAEMIA [None]
  - THROMBOCYTOPENIA [None]
